FAERS Safety Report 21800460 (Version 1)
Quarter: 2022Q4

REPORT INFORMATION
  Report Type: Spontaneous
  Country: CA (occurrence: CA)
  Receive Date: 20221230
  Receipt Date: 20221230
  Transmission Date: 20230113
  Serious: Yes (Hospitalization)
  Sender: FDA-Public Use
  Company Number: CA-PIERREL PHARMA S.R.L.-2022PIR00039

PATIENT
  Sex: Male

DRUGS (3)
  1. ORABLOC [Suspect]
     Active Substance: ARTICAINE HYDROCHLORIDE\EPINEPHRINE BITARTRATE
     Dosage: 3 CARPULES
  2. ORABLOC [Suspect]
     Active Substance: ARTICAINE HYDROCHLORIDE\EPINEPHRINE BITARTRATE
     Dosage: 4 CARPULES
  3. MEPIVACAINE [Concomitant]
     Active Substance: MEPIVACAINE HYDROCHLORIDE
     Dosage: 1 CARPULES

REACTIONS (2)
  - Rash [Recovered/Resolved]
  - Urticaria [Recovered/Resolved]
